FAERS Safety Report 21930928 (Version 1)
Quarter: 2023Q1

REPORT INFORMATION
  Report Type: Spontaneous
  Country: US (occurrence: None)
  Receive Date: 20230130
  Receipt Date: 20230130
  Transmission Date: 20230417
  Serious: Yes (Hospitalization)
  Sender: FDA-Public Use
  Company Number: None

PATIENT
  Age: 72 Year
  Weight: 78.02 kg

DRUGS (1)
  1. VERZENIO [Suspect]
     Active Substance: ABEMACICLIB

REACTIONS (1)
  - Therapy interrupted [None]
